FAERS Safety Report 6453101-0 (Version None)
Quarter: 2009Q4

REPORT INFORMATION
  Report Type: 
  Country: None (occurrence: None)
  Receive Date: 20091116
  Receipt Date: 20091105
  Transmission Date: 20100525
  Serious: Yes (Other)
  Sender: FDA-Public Use
  Company Number: B0603436A

PATIENT
  Age: 61 Year
  Sex: Male

DRUGS (9)
  1. FOSAMPRENAVIR (FORMULATION UNKNOWN) (GENERIC) (FOSAMPRENAVIR) [Suspect]
     Indication: HIV TEST POSITIVE
  2. ZIDOVUDINE [Suspect]
     Indication: HIV TEST POSITIVE
     Dosage: 300 MG / TWICE PER DAY
  3. LAMIVUDINE [Suspect]
     Indication: HIV TEST POSITIVE
     Dosage: 150 MG / TWICE PER DAY
  4. TACROLIMUS [Suspect]
  5. SIROLIMUS (FORMULATION UNKNOWN) (SIROLIMUS) [Suspect]
  6. BASILIXIMAB [Concomitant]
  7. CORTICOSTEROID [Concomitant]
  8. MYCOPHENOLATE MOFETIL [Concomitant]
  9. METHYLPREDNISOLONE [Concomitant]

REACTIONS (4)
  - DRUG INTERACTION [None]
  - DRUG LEVEL ABOVE THERAPEUTIC [None]
  - DRUG LEVEL BELOW THERAPEUTIC [None]
  - KAPOSI'S SARCOMA [None]
